FAERS Safety Report 12377837 (Version 1)
Quarter: 2016Q2

REPORT INFORMATION
  Report Type: Spontaneous
  Country: US (occurrence: US)
  Receive Date: 20160517
  Receipt Date: 20160517
  Transmission Date: 20160815
  Serious: No
  Sender: FDA-Public Use
  Company Number: US-MYLANLABS-2015M1015538

PATIENT
  Sex: Male

DRUGS (1)
  1. METHYLDOPA TABLETS, USP [Suspect]
     Active Substance: METHYLDOPA
     Dosage: UNK
     Route: 048

REACTIONS (1)
  - Foreign body [Not Recovered/Not Resolved]
